FAERS Safety Report 8119952-1 (Version None)
Quarter: 2012Q1

REPORT INFORMATION
  Report Type: 
  Country: None (occurrence: None)
  Receive Date: 20120203
  Receipt Date: 20120120
  Transmission Date: 20120608
  Serious: Yes (Hospitalization, Other)
  Sender: FDA-Public Use
  Company Number: JPI-P-019091

PATIENT
  Age: 29 Year
  Sex: Female
  Weight: 79.3795 kg

DRUGS (6)
  1. XYREM [Suspect]
     Indication: NARCOLEPSY
     Dosage: 9;4 GM (4.5 GM, 2 IN 1 D) ORAL
     Route: 048
     Dates: start: 20111230, end: 20120103
  2. XYREM [Suspect]
     Indication: NARCOLEPSY
     Dosage: 9;4 GM (4.5 GM, 2 IN 1 D) ORAL
     Route: 048
     Dates: start: 20110808, end: 20110101
  3. XYREM [Suspect]
     Indication: NARCOLEPSY
     Dosage: 9;4 GM (4.5 GM, 2 IN 1 D) ORAL
     Route: 048
     Dates: start: 20111229, end: 20111229
  4. XYREM [Suspect]
     Indication: NARCOLEPSY
     Dosage: 9;4 GM (4.5 GM, 2 IN 1 D) ORAL
     Route: 048
     Dates: start: 20110101, end: 20111228
  5. XYREM [Suspect]
     Indication: NARCOLEPSY
     Dosage: 9;4 GM (4.5 GM, 2 IN 1 D) ORAL
     Route: 048
     Dates: start: 20120101
  6. XYREM [Suspect]
     Indication: NARCOLEPSY
     Dosage: 9;4 GM (4.5 GM, 2 IN 1 D) ORAL
     Route: 048
     Dates: start: 20120104, end: 20120101

REACTIONS (21)
  - SOMNOLENCE [None]
  - ASPHYXIA [None]
  - PUPILLARY DISORDER [None]
  - DYSPNOEA [None]
  - VOMITING [None]
  - PARALYSIS [None]
  - NIGHTMARE [None]
  - WEIGHT INCREASED [None]
  - NARCOLEPSY [None]
  - INITIAL INSOMNIA [None]
  - INSOMNIA [None]
  - NIGHT SWEATS [None]
  - DRUG INEFFECTIVE [None]
  - HYPERHIDROSIS [None]
  - SPEECH DISORDER [None]
  - COMA [None]
  - FEELING HOT [None]
  - NAUSEA [None]
  - PRODUCT SUBSTITUTION ISSUE [None]
  - RETCHING [None]
  - MOVEMENT DISORDER [None]
